FAERS Safety Report 26063903 (Version 2)
Quarter: 2025Q4

REPORT INFORMATION
  Report Type: Spontaneous
  Country: BR (occurrence: None)
  Receive Date: 20251119
  Receipt Date: 20251120
  Transmission Date: 20260118
  Serious: Yes (Other)
  Sender: UCB
  Company Number: BR-UCBSA-2025071628

PATIENT
  Age: 72 Year

DRUGS (5)
  1. NEUPRO [Suspect]
     Active Substance: ROTIGOTINE
     Indication: Parkinson^s disease
     Dosage: 6 MILLIGRAM, ONCE DAILY (QD)
  2. BENSERAZIDE\LEVODOPA [Concomitant]
     Active Substance: BENSERAZIDE\LEVODOPA
     Indication: Parkinson^s disease
     Dosage: 1 AND A HALF TABLETS PER DOSE
  3. BENSERAZIDE\LEVODOPA [Concomitant]
     Active Substance: BENSERAZIDE\LEVODOPA
     Dosage: 100/25 SHE USES 2 TABLETS, 4 TIMES A DAY.
  4. XADAGO [Concomitant]
     Active Substance: SAFINAMIDE MESYLATE
     Indication: Parkinson^s disease
     Dosage: 10 MILLIGRAM, ONCE DAILY (QD)
  5. XADAGO [Concomitant]
     Active Substance: SAFINAMIDE MESYLATE
     Dosage: INCREASE IN DOSAGE REGIMEN

REACTIONS (6)
  - Knee arthroplasty [Unknown]
  - Pain [Unknown]
  - Gait disturbance [Unknown]
  - Gastritis [Unknown]
  - Off label use [Unknown]
  - Product adhesion issue [Unknown]
